FAERS Safety Report 10157825 (Version 2)
Quarter: 2014Q2

REPORT INFORMATION
  Report Type: Spontaneous
  Country: BR (occurrence: BR)
  Receive Date: 20140507
  Receipt Date: 20140515
  Transmission Date: 20141212
  Serious: Yes (Other)
  Sender: FDA-Public Use
  Company Number: BR-ASTELLAS-2014US004940

PATIENT
  Age: 47 Year
  Sex: Female

DRUGS (4)
  1. TARCEVA [Suspect]
     Indication: LUNG ADENOCARCINOMA
     Dosage: UNK UNK, UNKNOWN FREQ.
     Route: 065
     Dates: start: 201309
  2. TARCEVA [Suspect]
     Dosage: UNK UNK, UNKNOWN FREQ.
     Route: 065
  3. TARCEVA [Suspect]
     Dosage: UNK UNK, UNKNOWN FREQ.
     Route: 065
  4. CLOBAZAM [Suspect]
     Indication: PRODUCT USED FOR UNKNOWN INDICATION
     Route: 048
     Dates: start: 2014

REACTIONS (3)
  - Convulsion [Recovered/Resolved]
  - Rash [Recovered/Resolved]
  - Blood bilirubin increased [Recovered/Resolved]
